FAERS Safety Report 14399122 (Version 1)
Quarter: 2018Q1

REPORT INFORMATION
  Report Type: Spontaneous
  Country: US (occurrence: US)
  Receive Date: 20180117
  Receipt Date: 20180117
  Transmission Date: 20180509
  Serious: No
  Sender: FDA-Public Use
  Company Number: US-JNJFOC-20171206500

PATIENT
  Sex: Male
  Weight: 117.94 kg

DRUGS (7)
  1. CAMBIA [Concomitant]
     Active Substance: DICLOFENAC POTASSIUM
     Indication: CLUSTER HEADACHE
     Route: 065
  2. XARELTO [Suspect]
     Active Substance: RIVAROXABAN
     Indication: ATRIAL FIBRILLATION
     Route: 048
     Dates: start: 201706
  3. XARELTO [Suspect]
     Active Substance: RIVAROXABAN
     Indication: CEREBROVASCULAR ACCIDENT PROPHYLAXIS
     Route: 048
     Dates: start: 201706
  4. MELATONIN [Concomitant]
     Active Substance: MELATONIN
     Indication: CLUSTER HEADACHE
     Route: 065
  5. XARELTO [Suspect]
     Active Substance: RIVAROXABAN
     Indication: ATRIAL FIBRILLATION
     Route: 048
     Dates: start: 201701, end: 201703
  6. XARELTO [Suspect]
     Active Substance: RIVAROXABAN
     Indication: CEREBROVASCULAR ACCIDENT PROPHYLAXIS
     Route: 048
     Dates: start: 201701, end: 201703
  7. TOPIRAMATE. [Concomitant]
     Active Substance: TOPIRAMATE
     Indication: CLUSTER HEADACHE
     Route: 065

REACTIONS (2)
  - Cough [Unknown]
  - Cluster headache [Not Recovered/Not Resolved]

NARRATIVE: CASE EVENT DATE: 2017
